FAERS Safety Report 5975680-X (Version None)
Quarter: 2008Q4

REPORT INFORMATION
  Report Type: 
  Country: None (occurrence: None)
  Receive Date: 20081202
  Receipt Date: 20081121
  Transmission Date: 20090506
  Serious: Yes (Other)
  Sender: FDA-Public Use
  Company Number: PHHY2008JP28220

PATIENT
  Age: 74 Year
  Sex: Female

DRUGS (3)
  1. ZOMETA [Suspect]
     Indication: BREAST CANCER
     Dosage: UNK
     Route: 042
     Dates: start: 20060501, end: 20070601
  2. AREDIA [Suspect]
     Indication: BREAST CANCER
     Dosage: UNK
     Route: 042
     Dates: start: 20050101, end: 20060401
  3. ALENDRONATE SODIUM [Suspect]
     Dosage: UNK
     Route: 042
     Dates: end: 20050101

REACTIONS (7)
  - BONE DISORDER [None]
  - JAW OPERATION [None]
  - OSTEOMYELITIS [None]
  - OSTEONECROSIS [None]
  - PAIN IN JAW [None]
  - PERICORONITIS [None]
  - TOOTH EXTRACTION [None]
